FAERS Safety Report 8843801 (Version 1)
Quarter: 2012Q4

REPORT INFORMATION
  Report Type: 
  Country: US (occurrence: US)
  Receive Date: 20121016
  Receipt Date: 20121016
  Transmission Date: 20130627
  Serious: No
  Sender: FDA-Public Use
  Company Number: US-BAYER-2012-088563

PATIENT
  Age: 45 Year
  Sex: Female

DRUGS (1)
  1. GADAVIST [Suspect]
     Indication: NUCLEAR MAGNETIC RESONANCE IMAGING
     Dosage: 7.5 ml, ONCE
     Route: 042
     Dates: start: 20120420, end: 20120420

REACTIONS (1)
  - Urticaria [None]
